FAERS Safety Report 5076874-0 (Version None)
Quarter: 2006Q3

REPORT INFORMATION
  Report Type: 
  Country: None (occurrence: None)
  Receive Date: 20060807
  Receipt Date: 20060801
  Transmission Date: 20061208
  Serious: Yes (Hospitalization, Other)
  Sender: FDA-Public Use
  Company Number: 2002-01-0468

PATIENT
  Age: 47 Year
  Sex: Male
  Weight: 86.1834 kg

DRUGS (10)
  1. INTRON A [Suspect]
     Indication: HEPATITIS C
     Dosage: 3 MIU TIW SUBCUTANEOUS
     Route: 058
     Dates: start: 19990118, end: 20010701
  2. REBETOL [Suspect]
     Indication: HEPATITIS C
     Dosage: 1200 MG QD ORAL
     Route: 048
     Dates: start: 19990118, end: 20010701
  3. DEPAKOTE [Suspect]
  4. ZOLOFT [Suspect]
     Dosage: 50 MG QD; 3 - 4 YEAR(S)
  5. REMERON [Suspect]
     Dosage: 30 MG QD; 2 - 3 YEAR(S)
  6. BENZODIAZEPINE (NOS) [Suspect]
  7. LEXAPRO [Suspect]
     Dosage: 10 MG QD
  8. CENTRUM [Concomitant]
  9. MARINOL [Concomitant]
  10. CYCLOBENZAPRINE HCL [Concomitant]

REACTIONS (13)
  - AGGRESSION [None]
  - ANGER [None]
  - ANXIETY [None]
  - DENTAL CARIES [None]
  - DEPRESSION [None]
  - DRY MOUTH [None]
  - INFLUENZA LIKE ILLNESS [None]
  - PERIODONTAL DISEASE [None]
  - PSYCHOTIC DISORDER [None]
  - SALIVA ALTERED [None]
  - SUICIDAL IDEATION [None]
  - TOOTH DISORDER [None]
  - TOOTH FRACTURE [None]
